FAERS Safety Report 4273891-5 (Version None)
Quarter: 2004Q1

REPORT INFORMATION
  Report Type: 
  Country: None (occurrence: None)
  Receive Date: 20040115
  Receipt Date: 20040105
  Transmission Date: 20041129
  Serious: Yes (Hospitalization)
  Sender: FDA-Public Use
  Company Number: APP200400010 (0)

PATIENT
  Sex: Male

DRUGS (2)
  1. FLUOROURACIL INJ [Suspect]
     Indication: OESOPHAGEAL CARCINOMA
     Dosage: 200 MG/M2, 1 IN 1 D, INTRAVENOUS
     Route: 042
     Dates: start: 20030731, end: 20030807
  2. TEZACITABINE [Suspect]
     Indication: OESOPHAGEAL CARCINOMA
     Dosage: 200 MG/M2, ONCE, INTRAVENOUS
     Route: 042
     Dates: start: 20030731, end: 20030731

REACTIONS (10)
  - ANAEMIA [None]
  - ASTHENIA [None]
  - CHEST PAIN [None]
  - CHILLS [None]
  - FATIGUE [None]
  - FEBRILE NEUTROPENIA [None]
  - LETHARGY [None]
  - MALAISE [None]
  - PLEURITIC PAIN [None]
  - RHINORRHOEA [None]
